FAERS Safety Report 12485949 (Version 1)
Quarter: 2016Q2

REPORT INFORMATION
  Report Type: Spontaneous
  Country: AR (occurrence: AR)
  Receive Date: 20160621
  Receipt Date: 20160621
  Transmission Date: 20160815
  Serious: Yes (Other)
  Sender: FDA-Public Use
  Company Number: PHHY2016AR081805

PATIENT
  Age: 30 Year
  Sex: Female

DRUGS (6)
  1. CLOZAPINE. [Suspect]
     Active Substance: CLOZAPINE
     Dosage: UNK
     Route: 065
  2. LEVOMEPROMAZINE [Suspect]
     Active Substance: LEVOMEPROMAZINE
     Indication: PRODUCT USED FOR UNKNOWN INDICATION
     Route: 065
  3. ALPRAZOLAM. [Suspect]
     Active Substance: ALPRAZOLAM
     Indication: PRODUCT USED FOR UNKNOWN INDICATION
     Route: 065
  4. CLOZAPINE. [Suspect]
     Active Substance: CLOZAPINE
     Indication: PRODUCT USED FOR UNKNOWN INDICATION
     Dosage: UNK
     Route: 065
  5. CLOTIAPINE [Suspect]
     Active Substance: CLOTHIAPINE
     Indication: PRODUCT USED FOR UNKNOWN INDICATION
     Route: 065
  6. ZUCLOPENTHIXOL [Suspect]
     Active Substance: ZUCLOPENTHIXOL
     Indication: PRODUCT USED FOR UNKNOWN INDICATION
     Route: 065

REACTIONS (5)
  - Off label use [Unknown]
  - Neutropenia [Unknown]
  - Leukopenia [Unknown]
  - Neutropenia [Recovered/Resolved]
  - Leukopenia [Recovered/Resolved]
